FAERS Safety Report 7085301-3 (Version None)
Quarter: 2010Q4

REPORT INFORMATION
  Report Type: 
  Country: None (occurrence: None)
  Receive Date: 20101105
  Receipt Date: 20101027
  Transmission Date: 20110411
  Serious: Yes (Hospitalization, Other)
  Sender: FDA-Public Use
  Company Number: JP-PFIZER INC-2010138394

PATIENT
  Age: 76 Year
  Sex: Female

DRUGS (1)
  1. AROMASIN [Suspect]
     Indication: BREAST CANCER
     Dosage: 25 MG, 1X/DAY
     Route: 048
     Dates: start: 20060608

REACTIONS (4)
  - ASPERGILLOSIS [None]
  - CARDIAC FAILURE CONGESTIVE [None]
  - HYPOXIA [None]
  - WEIGHT DECREASED [None]
